FAERS Safety Report 17305723 (Version 1)
Quarter: 2020Q1

REPORT INFORMATION
  Report Type: Spontaneous
  Country: GB (occurrence: JP)
  Receive Date: 20200123
  Receipt Date: 20200123
  Transmission Date: 20200409
  Serious: Yes (Hospitalization, Other)
  Sender: FDA-Public Use
  Company Number: JP-ASTELLAS-2019US016405

PATIENT
  Age: 87 Year
  Sex: Male

DRUGS (2)
  1. ERLOTINIB [Suspect]
     Active Substance: ERLOTINIB
     Route: 048
     Dates: start: 20181121
  2. ERLOTINIB [Suspect]
     Active Substance: ERLOTINIB
     Indication: LUNG NEOPLASM MALIGNANT
     Route: 048
     Dates: start: 20180615, end: 20181107

REACTIONS (4)
  - Growth of eyelashes [Unknown]
  - Ulcerative keratitis [Recovering/Resolving]
  - Ulcerative keratitis [Unknown]
  - Trichiasis [Unknown]

NARRATIVE: CASE EVENT DATE: 20181107
